FAERS Safety Report 17328679 (Version 1)
Quarter: 2020Q1

REPORT INFORMATION
  Report Type: Spontaneous
  Country: AU (occurrence: AU)
  Receive Date: 20200127
  Receipt Date: 20200127
  Transmission Date: 20200409
  Serious: Yes (Death)
  Sender: FDA-Public Use
  Company Number: AU-TASMAN PHARMA, INC.-2020TSM00007

PATIENT
  Sex: Female
  Weight: 99 kg

DRUGS (28)
  1. CLOZAPINE. [Suspect]
     Active Substance: CLOZAPINE
     Dosage: 175 MG
     Dates: start: 20151123, end: 20151201
  2. CLOZAPINE. [Suspect]
     Active Substance: CLOZAPINE
     Dosage: 300 MG
     Dates: start: 20160630, end: 20160707
  3. CLOZAPINE. [Suspect]
     Active Substance: CLOZAPINE
     Dosage: 12.5 MG
     Dates: start: 20151026, end: 20151101
  4. CLOZAPINE. [Suspect]
     Active Substance: CLOZAPINE
     Dosage: 300 MG
     Dates: start: 20160427, end: 20160629
  5. CLOZAPINE. [Suspect]
     Active Substance: CLOZAPINE
     Dosage: 275 MG
     Dates: start: 20160203, end: 20160223
  6. CLOZAPINE. [Suspect]
     Active Substance: CLOZAPINE
     Dosage: 300 MG
     Dates: start: 20181016, end: 20190107
  7. CLOZAPINE. [Suspect]
     Active Substance: CLOZAPINE
     Dosage: 300 MG
     Dates: start: 20190607, end: 20191007
  8. CLOZAPINE. [Suspect]
     Active Substance: CLOZAPINE
     Dosage: 150 MG
     Dates: start: 20151116, end: 20151122
  9. CLOZAPINE. [Suspect]
     Active Substance: CLOZAPINE
     Dosage: 250 MG
     Dates: start: 20160105, end: 20160202
  10. CLOZAPINE. [Suspect]
     Active Substance: CLOZAPINE
     Dosage: 300 MG
     Dates: start: 20191008, end: 20191013
  11. CLOZAPINE. [Suspect]
     Active Substance: CLOZAPINE
     Dosage: 100 MG
     Dates: start: 20151102, end: 20151109
  12. CLOZAPINE. [Suspect]
     Active Substance: CLOZAPINE
     Dosage: 300 MG
     Dates: start: 20160929, end: 20161027
  13. CLOZAPINE. [Suspect]
     Active Substance: CLOZAPINE
     Dosage: 275 MG
     Dates: start: 20191121
  14. CLOZAPINE. [Suspect]
     Active Substance: CLOZAPINE
     Dosage: 300 MG
     Dates: start: 20161229, end: 20170328
  15. CLOZAPINE. [Suspect]
     Active Substance: CLOZAPINE
     Dosage: 300 MG
     Dates: start: 20160708, end: 20160928
  16. CLOZAPINE. [Suspect]
     Active Substance: CLOZAPINE
     Dosage: 275 MG
     Dates: start: 20191014, end: 20191120
  17. CLOZAPINE. [Suspect]
     Active Substance: CLOZAPINE
     Dosage: 300 MG
     Dates: start: 20161028, end: 20161228
  18. CLOZAPINE. [Suspect]
     Active Substance: CLOZAPINE
     Dosage: 225 MG
     Dates: start: 20151222, end: 20160104
  19. CLOZAPINE. [Suspect]
     Active Substance: CLOZAPINE
     Dosage: 300 MG
     Dates: start: 20160224, end: 20160426
  20. CLOZAPINE. [Suspect]
     Active Substance: CLOZAPINE
     Dosage: 300 MG
     Dates: start: 20170523, end: 20170613
  21. CLOZAPINE. [Suspect]
     Active Substance: CLOZAPINE
     Dosage: 200 MG
     Dates: start: 20190108, end: 20190401
  22. CLOZAPINE. [Suspect]
     Active Substance: CLOZAPINE
     Dosage: 200 MG
     Dates: start: 20190402, end: 20190606
  23. CLOZAPINE. [Suspect]
     Active Substance: CLOZAPINE
     Dosage: 200 MG
     Dates: start: 20151202, end: 20151221
  24. CLOZAPINE. [Suspect]
     Active Substance: CLOZAPINE
     Dosage: 125 MG
     Dates: start: 20151110, end: 20151115
  25. CLOZAPINE. [Suspect]
     Active Substance: CLOZAPINE
     Dosage: 300 MG
     Dates: start: 20170721, end: 20180820
  26. CLOZAPINE. [Suspect]
     Active Substance: CLOZAPINE
     Dosage: 300 MG
     Dates: start: 20170329, end: 20170522
  27. CLOZAPINE. [Suspect]
     Active Substance: CLOZAPINE
     Dosage: 300 MG
     Dates: start: 20170614, end: 20170720
  28. CLOZAPINE. [Suspect]
     Active Substance: CLOZAPINE
     Dosage: 300 MG
     Dates: start: 20180821, end: 20181015

REACTIONS (1)
  - Death [Fatal]

NARRATIVE: CASE EVENT DATE: 20200106
